FAERS Safety Report 5078003-6 (Version None)
Quarter: 2006Q3

REPORT INFORMATION
  Report Type: 
  Country: None (occurrence: None)
  Receive Date: 20060811
  Receipt Date: 20060731
  Transmission Date: 20061208
  Serious: Yes (Life-Threatening)
  Sender: FDA-Public Use
  Company Number: AU-JNJFOC-20060801910

PATIENT
  Sex: Female

DRUGS (3)
  1. TRAMADOL HCL [Suspect]
     Indication: DRUG USE FOR UNKNOWN INDICATION
  2. AROPAX [Suspect]
     Indication: DRUG USE FOR UNKNOWN INDICATION
     Route: 048
  3. PHENERGAN HCL [Concomitant]

REACTIONS (4)
  - AKATHISIA [None]
  - DELIRIUM [None]
  - HALLUCINATION, AUDITORY [None]
  - SEROTONIN SYNDROME [None]
